FAERS Safety Report 9156036 (Version 3)
Quarter: 2014Q1

REPORT INFORMATION
  Report Type: Spontaneous
  Country: US (occurrence: US)
  Receive Date: 20130311
  Receipt Date: 20140328
  Transmission Date: 20141002
  Serious: Yes (Death, Hospitalization)
  Sender: FDA-Public Use
  Company Number: US-BAYER-2013-027641

PATIENT
  Age: 83 Year
  Sex: Male
  Weight: 95 kg

DRUGS (5)
  1. ALEVE GELCAP [Suspect]
     Indication: ANALGESIC THERAPY
     Dosage: 1 DF, QD
     Route: 048
     Dates: start: 201103
  2. ALEVE GELCAP [Suspect]
     Indication: ANALGESIC THERAPY
  3. ALEVE CAPLET/TABLET,MIDOL EXTENDED RELIEF CAPLET [Suspect]
     Dosage: 1 DF, QD
     Route: 048
     Dates: start: 201103
  4. ALEVE CAPLET/TABLET,MIDOL EXTENDED RELIEF CAPLET [Suspect]
  5. METOPROLOL [Concomitant]

REACTIONS (5)
  - Dizziness [Recovered/Resolved]
  - Abasia [Recovered/Resolved]
  - Mobility decreased [Recovered/Resolved]
  - Asthenia [Recovered/Resolved]
  - Death [Fatal]
